FAERS Safety Report 18164585 (Version 2)
Quarter: 2021Q2

REPORT INFORMATION
  Report Type: Report from Study
  Country: CA (occurrence: CA)
  Receive Date: 20200818
  Receipt Date: 20210402
  Transmission Date: 20210717
  Serious: Yes (Life-Threatening, Hospitalization)
  Sender: FDA-Public Use
  Company Number: CA-ASTRAZENECA-2020SF02825

PATIENT
  Age: 40 Year
  Sex: Male
  Weight: 72.6 kg

DRUGS (9)
  1. METOPROLOL. [Suspect]
     Active Substance: METOPROLOL
     Indication: PRODUCT USED FOR UNKNOWN INDICATION
     Route: 065
  2. ATORVASTATIN [Concomitant]
     Active Substance: ATORVASTATIN
     Dosage: 80.0MG UNKNOWN
     Route: 065
  3. STELARA [Suspect]
     Active Substance: USTEKINUMAB
     Indication: CROHN^S DISEASE
     Route: 058
     Dates: start: 20161202, end: 20190409
  4. ASA [Concomitant]
     Active Substance: ASPIRIN
     Route: 065
  5. STELARA [Suspect]
     Active Substance: USTEKINUMAB
     Indication: PSORIASIS
     Route: 058
  6. TICAGRELOR. [Suspect]
     Active Substance: TICAGRELOR
     Indication: PRODUCT USED FOR UNKNOWN INDICATION
     Route: 048
     Dates: start: 20181121
  7. STELARA [Suspect]
     Active Substance: USTEKINUMAB
     Indication: CROHN^S DISEASE
     Route: 058
  8. RAMIPRIL. [Suspect]
     Active Substance: RAMIPRIL
     Indication: PRODUCT USED FOR UNKNOWN INDICATION
     Route: 048
  9. STELARA [Suspect]
     Active Substance: USTEKINUMAB
     Indication: PSORIASIS
     Route: 058
     Dates: start: 20161202, end: 20190409

REACTIONS (16)
  - Myocardial infarction [Recovered/Resolved]
  - Bronchitis [Not Recovered/Not Resolved]
  - Chest pain [Unknown]
  - Constipation [Unknown]
  - Dyspnoea [Unknown]
  - Pyrexia [Not Recovered/Not Resolved]
  - Lymphadenopathy [Unknown]
  - Headache [Unknown]
  - Lymphadenopathy [Unknown]
  - Dizziness [Unknown]
  - Dyspepsia [Unknown]
  - Oropharyngeal pain [Not Recovered/Not Resolved]
  - Scar pain [Not Recovered/Not Resolved]
  - Hypotension [Unknown]
  - Visual impairment [Unknown]
  - Rash erythematous [Unknown]

NARRATIVE: CASE EVENT DATE: 2017
